FAERS Safety Report 16725320 (Version 1)
Quarter: 2019Q3

REPORT INFORMATION
  Report Type: Spontaneous
  Country: FR (occurrence: FR)
  Receive Date: 20190821
  Receipt Date: 20190821
  Transmission Date: 20191005
  Serious: Yes (Other)
  Sender: FDA-Public Use
  Company Number: FR-PROVELL PHARMACEUTICALS-2073471

PATIENT
  Age: 80 Year
  Sex: Female
  Weight: 78 kg

DRUGS (5)
  1. CARDENSIEL 1.25 MG [Suspect]
     Active Substance: BISOPROLOL FUMARATE
     Route: 048
     Dates: start: 20170915
  2. LASILIX [Suspect]
     Active Substance: FUROSEMIDE
     Route: 048
     Dates: start: 20170915
  3. XARELTO [Suspect]
     Active Substance: RIVAROXABAN
     Route: 048
     Dates: start: 20170915, end: 20190220
  4. EUTHYROX [Suspect]
     Active Substance: LEVOTHYROXINE SODIUM
     Indication: HYPOTHYROIDISM
     Route: 048
  5. ZESTRIL [Suspect]
     Active Substance: LISINOPRIL
     Route: 048
     Dates: start: 20170915

REACTIONS (2)
  - Gamma-glutamyltransferase increased [Not Recovered/Not Resolved]
  - Transaminases increased [Not Recovered/Not Resolved]

NARRATIVE: CASE EVENT DATE: 20190215
